FAERS Safety Report 4521240-7 (Version None)
Quarter: 2004Q4

REPORT INFORMATION
  Report Type: 
  Country: None (occurrence: None)
  Receive Date: 20041206
  Receipt Date: 20041123
  Transmission Date: 20050328
  Serious: Yes (Death)
  Sender: FDA-Public Use
  Company Number: 041118-0000489

PATIENT
  Age: 71 Year
  Sex: Male
  Weight: 67 kg

DRUGS (4)
  1. PENTOBARBITAL SODIUM ([PENTOBARBITAL SODIUM) [Suspect]
     Indication: INSOMNIA
     Dosage: 50 MG
  2. TRIAZOLAM [Suspect]
     Indication: DEPRESSION
     Dosage: 0.25 MG
  3. AMITRIPTYLINE HCL [Suspect]
     Indication: DEPRESSION
     Dosage: 75 MG
  4. BROMAZEPAM (BROMAZEPAM) [Suspect]
     Indication: DEPRESSION
     Dosage: 5 MG

REACTIONS (2)
  - COMPLETED SUICIDE [None]
  - MULTIPLE DRUG OVERDOSE [None]
